FAERS Safety Report 18700425 (Version 3)
Quarter: 2021Q1

REPORT INFORMATION
  Report Type: Report from Study
  Country: US (occurrence: US)
  Receive Date: 20210105
  Receipt Date: 20210220
  Transmission Date: 20210419
  Serious: No
  Sender: FDA-Public Use
  Company Number: NVSC2020US347735

PATIENT
  Age: 34 Year
  Sex: Female

DRUGS (1)
  1. ENTRESTO [Suspect]
     Active Substance: SACUBITRIL\VALSARTAN
     Indication: CARDIAC FAILURE CHRONIC
     Dosage: UNK UNK, BID (24/26 MG)
     Route: 048
     Dates: start: 2018

REACTIONS (1)
  - Therapy partial responder [Recovering/Resolving]

NARRATIVE: CASE EVENT DATE: 202005
